FAERS Safety Report 8493869-5 (Version None)
Quarter: 2012Q3

REPORT INFORMATION
  Report Type: 
  Country: None (occurrence: None)
  Receive Date: 20120706
  Receipt Date: 20120622
  Transmission Date: 20120928
  Serious: Yes (Other)
  Sender: FDA-Public Use
  Company Number: GB-SANTEN INC.-INC-12-000201

PATIENT
  Age: 71 Year
  Sex: Male

DRUGS (5)
  1. TRAVOPROST AND TIMOLOL [Suspect]
     Indication: OCULAR HYPERTENSION
  2. AZARGA [Suspect]
  3. PRED FORTE [Suspect]
     Dates: start: 20110401
  4. MITOMYCIN [Suspect]
  5. TIMOLOL MALEATE [Suspect]
     Route: 061

REACTIONS (3)
  - UVEITIS [None]
  - OPTIC NERVE CUP/DISC RATIO INCREASED [None]
  - CHORIORETINAL DISORDER [None]
